FAERS Safety Report 10148982 (Version 1)
Quarter: 2014Q2

REPORT INFORMATION
  Report Type: Spontaneous
  Country: FR (occurrence: FR)
  Receive Date: 20140502
  Receipt Date: 20140502
  Transmission Date: 20141212
  Serious: Yes (Hospitalization)
  Sender: FDA-Public Use
  Company Number: FR-BRISTOL-MYERS SQUIBB COMPANY-20671293

PATIENT
  Age: 58 Year
  Sex: Female

DRUGS (1)
  1. SPRYCEL [Suspect]
     Indication: CHRONIC MYELOID LEUKAEMIA
     Dosage: INIATED FIRST WITH 100MG.70 MG 1/D 29-AUG-2012 TO 26-JUL-2013.
     Route: 048
     Dates: start: 20110515, end: 20120829

REACTIONS (2)
  - Pleural effusion [Recovered/Resolved]
  - Lipase increased [Not Recovered/Not Resolved]
